FAERS Safety Report 10271267 (Version 2)
Quarter: 2014Q3

REPORT INFORMATION
  Report Type: Spontaneous
  Country: US (occurrence: US)
  Receive Date: 20140701
  Receipt Date: 20140819
  Transmission Date: 20150326
  Serious: Yes (Other)
  Sender: FDA-Public Use
  Company Number: US-GILEAD-2014-0107180

PATIENT
  Age: 57 Year
  Sex: Male

DRUGS (2)
  1. LETAIRIS [Suspect]
     Active Substance: AMBRISENTAN
     Indication: COR PULMONALE CHRONIC
     Dosage: 10 MG, QD
     Route: 065
     Dates: start: 20111208
  2. VENTAVIS [Concomitant]
     Active Substance: ILOPROST

REACTIONS (5)
  - Fatigue [Unknown]
  - Malaise [Unknown]
  - Seasonal allergy [Unknown]
  - Sarcoidosis [Unknown]
  - Pulmonary function test [Unknown]

NARRATIVE: CASE EVENT DATE: 20140626
